FAERS Safety Report 7555409 (Version 21)
Quarter: 2015Q2

REPORT INFORMATION
  Report Type: Spontaneous
  Country: CA (occurrence: CA)
  Receive Date: 20100826
  Receipt Date: 20150512
  Transmission Date: 20150821
  Serious: Yes (Other)
  Sender: FDA-Public Use
  Company Number: CA-ROCHE-GNE305627

PATIENT
  Age: 45 Year
  Sex: Male

DRUGS (6)
  1. PULMICORT TURBUHALER [Concomitant]
     Active Substance: BUDESONIDE
     Indication: PRODUCT USED FOR UNKNOWN INDICATION
  2. XOLAIR [Suspect]
     Active Substance: OMALIZUMAB
     Indication: ASTHMA
     Route: 058
     Dates: start: 20091007
  3. SINGULAIR [Concomitant]
     Active Substance: MONTELUKAST SODIUM
  4. SYMBICORT [Concomitant]
     Active Substance: BUDESONIDE\FORMOTEROL FUMARATE DIHYDRATE
     Route: 065
     Dates: start: 20121027, end: 20121102
  5. SODIUM BICARBONATE. [Concomitant]
     Active Substance: SODIUM BICARBONATE
     Indication: PRODUCT USED FOR UNKNOWN INDICATION
  6. QVAR [Concomitant]
     Active Substance: BECLOMETHASONE DIPROPIONATE

REACTIONS (19)
  - Ear infection [Unknown]
  - Oral candidiasis [Unknown]
  - Sinus congestion [Unknown]
  - Contusion [Not Recovered/Not Resolved]
  - Pain [Unknown]
  - Ear pain [Unknown]
  - Oropharyngeal pain [Unknown]
  - Ecchymosis [Unknown]
  - Pyrexia [Unknown]
  - Hypoaesthesia [Unknown]
  - Nasopharyngitis [Unknown]
  - Blood pressure increased [Unknown]
  - Hyposmia [Recovering/Resolving]
  - Cough [Unknown]
  - Sinusitis [Unknown]
  - Pulmonary congestion [Unknown]
  - Hypothermia [Unknown]
  - Polyp [Unknown]
  - Nasal polyps [Unknown]

NARRATIVE: CASE EVENT DATE: 201201
